FAERS Safety Report 19119658 (Version 3)
Quarter: 2021Q2

REPORT INFORMATION
  Report Type: Spontaneous
  Country: JP (occurrence: JP)
  Receive Date: 20210412
  Receipt Date: 20210611
  Transmission Date: 20210717
  Serious: Yes (Other)
  Sender: FDA-Public Use
  Company Number: JP-ROCHE-2808370

PATIENT
  Age: 43 Year
  Sex: Female

DRUGS (5)
  1. XOLAIR [Suspect]
     Active Substance: OMALIZUMAB
     Indication: URTICARIA CHRONIC
     Route: 058
     Dates: start: 20210330, end: 20210330
  2. GASTER [Concomitant]
     Active Substance: FAMOTIDINE
     Indication: IDIOPATHIC URTICARIA
     Dosage: 20 MG
     Route: 048
     Dates: start: 20210301, end: 20210430
  3. ALLEGRA [Concomitant]
     Active Substance: FEXOFENADINE HYDROCHLORIDE
     Indication: IDIOPATHIC URTICARIA
     Dosage: 60 MG
     Route: 048
     Dates: start: 20210301, end: 20210530
  4. EPINEPHRINE. [Concomitant]
     Active Substance: EPINEPHRINE
  5. DESALEX [Concomitant]
     Active Substance: DESLORATADINE
     Indication: IDIOPATHIC URTICARIA
     Dosage: 5 MG
     Route: 048
     Dates: start: 20210301, end: 20210430

REACTIONS (6)
  - Anaphylactic reaction [Recovered/Resolved]
  - Urticaria [Unknown]
  - Rash [Unknown]
  - Pharyngeal swelling [Recovered/Resolved]
  - Cough [Recovered/Resolved]
  - Pruritus [Recovering/Resolving]

NARRATIVE: CASE EVENT DATE: 20210330
